FAERS Safety Report 15336580 (Version 8)
Quarter: 2019Q4

REPORT INFORMATION
  Report Type: Report from Study
  Country: US (occurrence: US)
  Receive Date: 20180830
  Receipt Date: 20191218
  Transmission Date: 20200122
  Serious: Yes (Life-Threatening, Hospitalization, Other)
  Sender: FDA-Public Use
  Company Number: PHHY2018US085398

PATIENT
  Age: 13 Year
  Sex: Female
  Weight: 61 kg

DRUGS (4)
  1. KYMRIAH [Suspect]
     Active Substance: TISAGENLECLEUCEL
     Indication: ACUTE LYMPHOCYTIC LEUKAEMIA
     Dosage: 24 ML, ONCE/SINGLE
     Route: 042
     Dates: start: 20180702
  2. KYMRIAH [Suspect]
     Active Substance: TISAGENLECLEUCEL
     Indication: B-CELL TYPE ACUTE LEUKAEMIA
  3. CYCLOPHOSPHAMIDE. [Concomitant]
     Active Substance: CYCLOPHOSPHAMIDE
     Indication: CHEMOTHERAPY
     Route: 065
  4. FLUDARABINE [Concomitant]
     Active Substance: FLUDARABINE PHOSPHATE
     Indication: CHEMOTHERAPY
     Route: 065

REACTIONS (29)
  - Irritability [Unknown]
  - Headache [Unknown]
  - Delirium [Unknown]
  - Disorientation [Unknown]
  - Hallucination [Unknown]
  - Hypotension [Unknown]
  - Tachycardia [Unknown]
  - Coagulopathy [Unknown]
  - Neurotoxicity [Recovered/Resolved]
  - Cytopenia [Unknown]
  - Corona virus infection [Unknown]
  - Tremor [Unknown]
  - Treatment failure [Unknown]
  - Hypoxia [Unknown]
  - Asthenia [Unknown]
  - Cytokine release syndrome [Recovered/Resolved]
  - Arrhythmia [Unknown]
  - Liver disorder [Unknown]
  - Confusional state [Unknown]
  - Lethargy [Unknown]
  - Minimal residual disease [Unknown]
  - Acute lymphocytic leukaemia recurrent [Unknown]
  - Viral upper respiratory tract infection [Unknown]
  - Pyrexia [Unknown]
  - Somnolence [Unknown]
  - Malignant neoplasm progression [Unknown]
  - Hypogammaglobulinaemia [Unknown]
  - Depressed level of consciousness [Unknown]
  - Sinusitis [Unknown]

NARRATIVE: CASE EVENT DATE: 20180702
